FAERS Safety Report 7408528-7 (Version None)
Quarter: 2011Q2

REPORT INFORMATION
  Report Type: 
  Country: None (occurrence: None)
  Receive Date: 20110412
  Receipt Date: 20110407
  Transmission Date: 20111010
  Serious: Yes (Other)
  Sender: FDA-Public Use
  Company Number: ES-PFIZER INC-2011077076

PATIENT
  Age: 74 Year
  Sex: Male

DRUGS (4)
  1. TAZOCEL [Suspect]
     Indication: URINARY TRACT INFECTION
     Dosage: 4 G, 3X/DAY
     Route: 042
     Dates: start: 20101012, end: 20101019
  2. HIBOR [Interacting]
     Indication: PROPHYLAXIS
     Dosage: 3500 IU, 1X/DAY
     Route: 058
     Dates: start: 20101013, end: 20101020
  3. BUSCAPINA COMPOSITUM [Concomitant]
     Indication: BLADDER SPASM
     Dosage: 1 DF, 3X/DAY
     Route: 042
     Dates: start: 20101013, end: 20101016
  4. PANTOPRAZOLE SODIUM [Concomitant]
     Indication: PROPHYLAXIS
     Dosage: 40 MG, 1X/DAY
     Route: 042
     Dates: start: 20101012

REACTIONS (2)
  - COAGULOPATHY [None]
  - DRUG INTERACTION [None]
